FAERS Safety Report 24180741 (Version 1)
Quarter: 2024Q3

REPORT INFORMATION
  Report Type: Spontaneous
  Country: FR (occurrence: FR)
  Receive Date: 20240806
  Receipt Date: 20240806
  Transmission Date: 20241016
  Serious: Yes (Life-Threatening)
  Sender: BAUSCH AND LOMB
  Company Number: None

PATIENT
  Age: 74 Year
  Sex: Female
  Weight: 82 kg

DRUGS (3)
  1. DEXAMETHASONE [Interacting]
     Active Substance: DEXAMETHASONE
     Indication: Plasma cell myeloma
     Dosage: CF. COMMENTAIRE
     Route: 048
     Dates: start: 20221214, end: 20240522
  2. POMALIDOMIDE [Interacting]
     Active Substance: POMALIDOMIDE
     Indication: Plasma cell myeloma
     Dosage: CF. COMMENTAIRE
     Route: 042
     Dates: start: 20221214, end: 20240522
  3. ISATUXIMAB [Interacting]
     Active Substance: ISATUXIMAB
     Indication: Plasma cell myeloma
     Dosage: 20 MG/ML, DILUTED SOLUTION FOR PERFUSION
     Route: 042
     Dates: start: 20221214, end: 20240522

REACTIONS (2)
  - Pancytopenia [Recovering/Resolving]
  - Pneumonia parainfluenzae viral [Recovered/Resolved]

NARRATIVE: CASE EVENT DATE: 20240529
